FAERS Safety Report 8157602-9 (Version None)
Quarter: 2012Q1

REPORT INFORMATION
  Report Type: 
  Country: None (occurrence: None)
  Receive Date: 20120222
  Receipt Date: 20110817
  Transmission Date: 20120608
  Serious: No
  Sender: FDA-Public Use
  Company Number: US-ASTRAZENECA-2011SE21235

PATIENT
  Age: 78 Year
  Sex: Female

DRUGS (5)
  1. TENORMIN [Suspect]
     Indication: HEART RATE IRREGULAR
     Route: 048
  2. TENORMIN [Suspect]
     Indication: HYPERTENSION
     Route: 048
  3. TENORMIN [Suspect]
     Route: 048
     Dates: start: 20110319, end: 20110401
  4. TENORMIN [Suspect]
     Route: 048
     Dates: start: 20110319, end: 20110401
  5. MECLIZINE HYDROCHLORIDE [Concomitant]
     Indication: VERTIGO

REACTIONS (4)
  - SYNCOPE [None]
  - ASTHENIA [None]
  - HOT FLUSH [None]
  - DYSPEPSIA [None]
